FAERS Safety Report 7591712-X (Version None)
Quarter: 2011Q3

REPORT INFORMATION
  Report Type: 
  Country: None (occurrence: None)
  Receive Date: 20110706
  Receipt Date: 20110511
  Transmission Date: 20111222
  Serious: No
  Sender: FDA-Public Use
  Company Number: US-BAYER-2011-042380

PATIENT
  Age: 8 Month
  Sex: Male
  Weight: 7 kg

DRUGS (1)
  1. ALEVE (CAPLET) [Suspect]
     Indication: ACCIDENTAL DRUG INTAKE BY CHILD
     Dosage: INGESTED A LITTLE MORE THAN HALF OF AN ALEVE CAPLET
     Route: 048
     Dates: start: 20110511

REACTIONS (1)
  - NO ADVERSE EVENT [None]
